FAERS Safety Report 12678208 (Version 1)
Quarter: 2016Q3

REPORT INFORMATION
  Report Type: Report from Study
  Country: IT (occurrence: IT)
  Receive Date: 20160823
  Receipt Date: 20160823
  Transmission Date: 20161109
  Serious: Yes (Other)
  Sender: FDA-Public Use
  Company Number: IT-ABBVIE-16K-083-1705191-00

PATIENT
  Age: 59 Year
  Sex: Male
  Weight: 127 kg

DRUGS (1)
  1. DUODOPA [Suspect]
     Active Substance: CARBIDOPA\LEVODOPA
     Indication: PARKINSON^S DISEASE
     Dosage: MD 5 +3; CR 5, 5; ED 3
     Route: 050
     Dates: start: 20160505, end: 20160810

REACTIONS (1)
  - Fascial infection [Unknown]

NARRATIVE: CASE EVENT DATE: 201608
